FAERS Safety Report 5246235-X (Version None)
Quarter: 2007Q1

REPORT INFORMATION
  Report Type: 
  Country: None (occurrence: None)
  Receive Date: 20070221
  Receipt Date: 20070209
  Transmission Date: 20070707
  Serious: Yes (Death, Hospitalization)
  Sender: FDA-Public Use
  Company Number: GXKR2007JP01584

PATIENT
  Age: 56 Year
  Sex: Male

DRUGS (5)
  1. METHOTREXATE [Suspect]
     Indication: PROPHYLAXIS
     Dosage: SEE IMAGE
  2. PREDNISOLONE [Suspect]
     Indication: GRAFT VERSUS HOST DISEASE
     Dosage: 2 MG/KG
  3. CYCLOPHOSPHAMIDE [Suspect]
     Dosage: 6 MG/KG
  4. FLUDARABINE PHOSPHATE [Suspect]
     Dosage: 25 MG/M2
  5. TACROLIMUS(TACROLIMUS) [Suspect]
     Indication: PROPHYLAXIS
     Dosage: 0.025 MG KG DAY (STARTING ON DAY), UNK

REACTIONS (20)
  - ADENOVIRUS INFECTION [None]
  - ALANINE AMINOTRANSFERASE INCREASED [None]
  - ASPARTATE AMINOTRANSFERASE INCREASED [None]
  - ATRIOVENTRICULAR BLOCK COMPLETE [None]
  - BLOOD CREATINE PHOSPHOKINASE INCREASED [None]
  - BLOOD LACTATE DEHYDROGENASE INCREASED [None]
  - CARDIOGENIC SHOCK [None]
  - CONTINUOUS HAEMODIAFILTRATION [None]
  - DISEASE RECURRENCE [None]
  - DRUG INEFFECTIVE [None]
  - GRAFT VERSUS HOST DISEASE [None]
  - HYPOKINESIA [None]
  - INFECTION IN AN IMMUNOCOMPROMISED HOST [None]
  - MYOCARDITIS [None]
  - PARAINFLUENZAE VIRUS INFECTION [None]
  - PYREXIA [None]
  - RASH [None]
  - RENAL FAILURE ACUTE [None]
  - VENTRICULAR FIBRILLATION [None]
  - VENTRICULAR TACHYCARDIA [None]
